FAERS Safety Report 13344384 (Version 2)
Quarter: 2017Q1

REPORT INFORMATION
  Report Type: Report from Study
  Country: GB (occurrence: GB)
  Receive Date: 20170317
  Receipt Date: 20170324
  Transmission Date: 20170428
  Serious: Yes (Other)
  Sender: FDA-Public Use
  Company Number: GB-BEH-2017078911

PATIENT

DRUGS (1)
  1. HUMAN IMMUNOGLOBULIN IV (GENERIC) [Suspect]
     Active Substance: HUMAN IMMUNOGLOBULIN G
     Indication: PRODUCT USED FOR UNKNOWN INDICATION
     Dosage: HIGH DOSE
     Route: 042

REACTIONS (3)
  - Haemoglobin decreased [Unknown]
  - Haemolytic transfusion reaction [Unknown]
  - Haemoglobinuria [Unknown]
